FAERS Safety Report 10215322 (Version 2)
Quarter: 2014Q2

REPORT INFORMATION
  Report Type: Spontaneous
  Country: PL (occurrence: PL)
  Receive Date: 20140603
  Receipt Date: 20140626
  Transmission Date: 20141212
  Serious: Yes (Hospitalization)
  Sender: FDA-Public Use
  Company Number: PHHY2014PL065473

PATIENT
  Age: 11 Year
  Sex: Female
  Weight: 60.5 kg

DRUGS (4)
  1. SOMATROPIN [Suspect]
     Indication: GROWTH HORMONE DEFICIENCY
     Dosage: 0.03 MG/KG/BODY WEIGHT
  2. HYDROCORTISONE [Concomitant]
     Indication: HORMONE REPLACEMENT THERAPY
     Dosage: 15 MG, 10 TO 15MG DAILY
  3. EUTHYROX [Concomitant]
     Indication: HORMONE REPLACEMENT THERAPY
     Dosage: 75 UG DAILY
  4. MINIRIN [Concomitant]
     Indication: HORMONE REPLACEMENT THERAPY
     Dosage: 0.075 MG, 0.05 TO 0.075 DAILY

REACTIONS (3)
  - Somnolence [Recovered/Resolved]
  - Tonsillar hypertrophy [Recovered/Resolved]
  - Sleep apnoea syndrome [Recovered/Resolved]
